FAERS Safety Report 9272847 (Version 1)
Quarter: 2013Q2

REPORT INFORMATION
  Report Type: Spontaneous
  Country: US (occurrence: US)
  Receive Date: 20130506
  Receipt Date: 20130506
  Transmission Date: 20140414
  Serious: No
  Sender: FDA-Public Use
  Company Number: US-ASTRAZENECA-2012SE43471

PATIENT
  Age: 80 Year
  Sex: Female

DRUGS (8)
  1. PRILOSEC OTC [Suspect]
     Route: 048
  2. CHEMOTHERAPEUTICS NOS [Concomitant]
     Indication: PANCREATIC CARCINOMA
  3. ONDANSETRON HYDROCHLORIDE [Concomitant]
  4. LORAZEPAM [Concomitant]
  5. VITAMIN D3 [Concomitant]
  6. VITAMIN B 6 [Concomitant]
  7. ENZYMES [Concomitant]
  8. MIRALAX [Concomitant]

REACTIONS (3)
  - Pancreatic enzymes decreased [Not Recovered/Not Resolved]
  - Pancreatic disorder [Not Recovered/Not Resolved]
  - Incorrect drug administration duration [Unknown]
